FAERS Safety Report 16580971 (Version 3)
Quarter: 2019Q3

REPORT INFORMATION
  Report Type: Spontaneous
  Country: JP (occurrence: JP)
  Receive Date: 20190716
  Receipt Date: 20190726
  Transmission Date: 20191004
  Serious: No
  Sender: FDA-Public Use
  Company Number: JP-JNJFOC-20190713123

PATIENT
  Age: 6 Decade
  Sex: Female

DRUGS (1)
  1. CONCERTA [Suspect]
     Active Substance: METHYLPHENIDATE HYDROCHLORIDE
     Indication: ATTENTION DEFICIT/HYPERACTIVITY DISORDER
     Dosage: METHYLPHENIDATE HYDROCHLORIDE:18MG
     Route: 048
     Dates: start: 20190703, end: 20190703

REACTIONS (1)
  - Dental caries [Unknown]
